FAERS Safety Report 15706866 (Version 1)
Quarter: 2018Q4

REPORT INFORMATION
  Report Type: Spontaneous
  Country: DE (occurrence: DE)
  Receive Date: 20181210
  Receipt Date: 20181210
  Transmission Date: 20190205
  Serious: Yes (Death, Other)
  Sender: FDA-Public Use
  Company Number: DE-MYLANLABS-2017M1078371

PATIENT

DRUGS (11)
  1. TRETINOIN. [Suspect]
     Active Substance: TRETINOIN
     Dosage: CONSOLIDATION: 45 MG/M2/D) WAS GIVEN ON DAYS 1 THROUGH 15
  2. IDARUBICIN [Suspect]
     Active Substance: IDARUBICIN
     Dosage: CONSOLIDATION: 3 SINGLE-AGENT CHEMOTHERAPY COURSES; IN THE FIRST COURSE TO 7 MG/M?/D
  3. MERCAPTOPURINE. [Suspect]
     Active Substance: MERCAPTOPURINE
     Indication: PRODUCT USED FOR UNKNOWN INDICATION
     Dosage: WBC COUNT WAS LESS THAN 3.5 X 10E9/L
     Route: 048
  4. TRETINOIN. [Suspect]
     Active Substance: TRETINOIN
     Dosage: ORAL ATRA (45 MG/M?/D) FOR 15 DAYS EVERY 3 MONTHS. 2 YEARS
     Route: 048
  5. MERCAPTOPURINE. [Suspect]
     Active Substance: MERCAPTOPURINE
     Dosage: PATIENTS NEGATIVE FOR PML/RARA WERE STARTED ON ORAL MERCAPTOPURINE (50 MG/M?/D), 15 D/3 MO, 2 Y
     Route: 048
  6. TRETINOIN. [Suspect]
     Active Substance: TRETINOIN
     Indication: PRODUCT USED FOR UNKNOWN INDICATION
     Dosage: INDUCTION: FOR PATIENTS 20 YEARS OF AGE OR YOUNGER, THE ATRA DOSE WAS ADJUSTED TO 25 MG/M?/D
     Route: 048
  7. IDARUBICIN [Suspect]
     Active Substance: IDARUBICIN
     Indication: PRODUCT USED FOR UNKNOWN INDICATION
     Dosage: DOSE ON DAYS 2, 4, 6 AND 8 (OLDER THAN 70: NO DOSE ON DAY 8)
     Route: 040
  8. TRETINOIN. [Suspect]
     Active Substance: TRETINOIN
     Dosage: INDUCTION: 45MG/M?/D), 2 DAILY DOSES,  UNTIL COMPLETE HEMATOLOGIC REMISSION, OR MAX. 90 DAYS
     Route: 048
  9. METHOTREXATE. [Suspect]
     Active Substance: METHOTREXATE
     Indication: PRODUCT USED FOR UNKNOWN INDICATION
     Dosage: INTRAMUSCULAR METHOTREXATE (15 MG/M?/WK), 15 D/3 MO, 2 Y
     Route: 030
  10. MERCAPTOPURINE. [Suspect]
     Active Substance: MERCAPTOPURINE
     Dosage: DISCONTINUED IF WBC WAS LESS THAN 2.5 X 10E9/L
  11. IDARUBICIN [Suspect]
     Active Substance: IDARUBICIN
     Dosage: CONSOLIDATION: 2 CONSECUTIVE DAYS INSTEAD OF ONE IN THE THIRD COURSE

REACTIONS (12)
  - Infection [Fatal]
  - Acute myeloid leukaemia [Unknown]
  - Multiple organ dysfunction syndrome [Fatal]
  - Haemorrhage [Fatal]
  - Hepatotoxicity [Unknown]
  - Leukaemia recurrent [Recovered/Resolved]
  - Cytopenia [Recovered/Resolved]
  - Differentiation syndrome [Unknown]
  - Cardiotoxicity [Unknown]
  - Hepatic cirrhosis [Fatal]
  - Mucosal inflammation [Unknown]
  - Chondrosarcoma [Unknown]
